FAERS Safety Report 11136196 (Version 2)
Quarter: 2015Q2

REPORT INFORMATION
  Report Type: Spontaneous
  Country: US (occurrence: US)
  Receive Date: 20150526
  Receipt Date: 20150625
  Transmission Date: 20150821
  Serious: No
  Sender: FDA-Public Use
  Company Number: US-SHIRE-US201504525

PATIENT
  Age: 6 Year
  Sex: Male
  Weight: 26.3 kg

DRUGS (7)
  1. VYVANSE [Suspect]
     Active Substance: LISDEXAMFETAMINE DIMESYLATE
     Dosage: 20 MG, 1X/DAY:QD
     Route: 048
     Dates: start: 20150423
  2. VYVANSE [Suspect]
     Active Substance: LISDEXAMFETAMINE DIMESYLATE
     Dosage: 30 MG (20 MG CAPSULE AND 10 MG CAPSULE), 1X/DAY:QD
     Route: 048
     Dates: start: 20150403, end: 20150422
  3. VYVANSE [Suspect]
     Active Substance: LISDEXAMFETAMINE DIMESYLATE
     Indication: ATTENTION DEFICIT/HYPERACTIVITY DISORDER
     Dosage: UNK (ONE HALF CONTENTS OF A 10 MG VYVANSE), 1X/DAY:QD
     Route: 048
     Dates: start: 20150220, end: 20150222
  4. VYVANSE [Suspect]
     Active Substance: LISDEXAMFETAMINE DIMESYLATE
     Dosage: 10 MG, 1X/DAY:QD
     Route: 048
     Dates: start: 20150223, end: 20150302
  5. VYVANSE [Suspect]
     Active Substance: LISDEXAMFETAMINE DIMESYLATE
     Dosage: 20 MG, 1X/DAY:QD
     Route: 048
     Dates: start: 20150309, end: 20150330
  6. VYVANSE [Suspect]
     Active Substance: LISDEXAMFETAMINE DIMESYLATE
     Dosage: UNK (ONE 10 MG CAPSULE AND ONE HALF CONTENTS OF A 10 MG VYVANSE), 1X/DAY:QD
     Route: 048
     Dates: start: 20150303, end: 20150308
  7. VYVANSE [Suspect]
     Active Substance: LISDEXAMFETAMINE DIMESYLATE
     Dosage: UNK (ONE 20 MG CAPSULE AND ONE HALF CONTENTS OF A 10 MG CAPSULE), 1X/DAY:QD
     Route: 048
     Dates: start: 20150331, end: 20150402

REACTIONS (7)
  - Dysgraphia [Not Recovered/Not Resolved]
  - Drug ineffective [Not Recovered/Not Resolved]
  - Abnormal loss of weight [Recovered/Resolved]
  - Disturbance in social behaviour [Not Recovered/Not Resolved]
  - Decreased appetite [Not Recovered/Not Resolved]
  - Incorrect dose administered [Recovered/Resolved]
  - Increased appetite [Not Recovered/Not Resolved]

NARRATIVE: CASE EVENT DATE: 20150220
